FAERS Safety Report 5735128-7 (Version None)
Quarter: 2008Q2

REPORT INFORMATION
  Report Type: 
  Country: None (occurrence: None)
  Receive Date: 20080512
  Receipt Date: 20080501
  Transmission Date: 20081010
  Serious: Yes (Other)
  Sender: FDA-Public Use
  Company Number: US-ELI_LILLY_AND_COMPANY-US200803000265

PATIENT
  Age: 58 Year
  Sex: Female
  Weight: 47.619 kg

DRUGS (1)
  1. FORTEO [Suspect]
     Indication: OSTEOPENIA
     Dosage: 20 UG, DAILY (1/D)
     Dates: start: 20080227, end: 20080228

REACTIONS (12)
  - ABDOMINAL MASS [None]
  - ACCIDENTAL OVERDOSE [None]
  - CRYING [None]
  - FEELING ABNORMAL [None]
  - INJECTION SITE RASH [None]
  - MEDICATION ERROR [None]
  - MOBILITY DECREASED [None]
  - MUSCLE SPASMS [None]
  - NAUSEA [None]
  - OVERDOSE [None]
  - PAIN [None]
  - VOMITING [None]
